FAERS Safety Report 17282390 (Version 1)
Quarter: 2020Q1

REPORT INFORMATION
  Report Type: Spontaneous
  Country: US (occurrence: US)
  Receive Date: 20200117
  Receipt Date: 20200117
  Transmission Date: 20200409
  Serious: No
  Sender: FDA-Public Use
  Company Number: US-GLAXOSMITHKLINE-US2020AMR004674

PATIENT
  Sex: Female
  Weight: 62.6 kg

DRUGS (2)
  1. WELLBUTRIN [Suspect]
     Active Substance: BUPROPION HYDROCHLORIDE
     Indication: DEPRESSION
  2. WELLBUTRIN [Suspect]
     Active Substance: BUPROPION HYDROCHLORIDE
     Indication: BIPOLAR I DISORDER
     Dosage: 150 MG, QD
     Route: 048
     Dates: start: 1998

REACTIONS (1)
  - Drug ineffective [Unknown]
